FAERS Safety Report 9462068 (Version 3)
Quarter: 2014Q2

REPORT INFORMATION
  Report Type: Report from Study
  Country: GR (occurrence: GR)
  Receive Date: 20130816
  Receipt Date: 20140401
  Transmission Date: 20141212
  Serious: Yes (Hospitalization)
  Sender: FDA-Public Use
  Company Number: GR-TEVA-426534USA

PATIENT
  Age: 61 Year
  Sex: Female
  Weight: 64 kg

DRUGS (10)
  1. BENDAMUSTINE [Suspect]
     Indication: CHRONIC LYMPHOCYTIC LEUKAEMIA
     Dosage: ONCE IN 28 DAYS
     Route: 042
     Dates: start: 20130620
  2. BENDAMUSTINE [Suspect]
     Route: 042
     Dates: start: 20130718
  3. RITUXIMAB [Suspect]
     Indication: CHRONIC LYMPHOCYTIC LEUKAEMIA
     Dosage: ONCE IN 28 DAYS.
     Route: 042
     Dates: start: 20130619
  4. RITUXIMAB [Suspect]
     Route: 042
     Dates: start: 20130717
  5. IBRUTINIB/PLACEBO [Suspect]
     Indication: CHRONIC LYMPHOCYTIC LEUKAEMIA
     Dosage: 420 MILLIGRAM DAILY;
     Route: 048
     Dates: start: 20130620, end: 20130803
  6. LEVOTHYROXINE SODIUM [Concomitant]
     Indication: HYPOTHYROIDISM
     Dosage: .1 MILLIGRAM DAILY;
     Route: 048
  7. SIMVASTATIN [Concomitant]
     Indication: DYSLIPIDAEMIA
     Dosage: 20 MILLIGRAM DAILY;
     Route: 048
  8. DEXAMETHASONE [Concomitant]
     Route: 042
     Dates: start: 20130717, end: 20130821
  9. DIMETINDENE MALEATE [Concomitant]
     Route: 042
  10. PARACETAMOL [Concomitant]
     Route: 042

REACTIONS (1)
  - Cognitive disorder [Recovered/Resolved]
